FAERS Safety Report 17352371 (Version 6)
Quarter: 2020Q4

REPORT INFORMATION
  Report Type: Spontaneous
  Country: US (occurrence: US)
  Receive Date: 20200130
  Receipt Date: 20201119
  Transmission Date: 20210113
  Serious: Yes (Other)
  Sender: FDA-Public Use
  Company Number: US-BRISTOL-MYERS SQUIBB COMPANY-BMS-2020-004445

PATIENT
  Age: 65 Year
  Sex: Female
  Weight: 104.31 kg

DRUGS (15)
  1. NULOJIX [Suspect]
     Active Substance: BELATACEPT
     Dosage: 500 MILLIGRAM, DAILY
     Route: 042
     Dates: start: 20181115, end: 20181115
  2. NULOJIX [Suspect]
     Active Substance: BELATACEPT
     Dosage: 500 MILLIGRAM, DAILY
     Route: 042
     Dates: start: 20190110, end: 20190110
  3. MYFORTIC [Suspect]
     Active Substance: MYCOPHENOLATE SODIUM
     Indication: RENAL TRANSPLANT
     Dosage: 300 MILLIGRAM
     Route: 048
     Dates: start: 2015
  4. POTASSIUM [Concomitant]
     Active Substance: POTASSIUM
     Indication: PRODUCT USED FOR UNKNOWN INDICATION
     Dosage: 20 MICROGRAM
     Route: 048
     Dates: start: 20190417
  5. NULOJIX [Suspect]
     Active Substance: BELATACEPT
     Dosage: 500 MILLIGRAM, DAILY
     Route: 042
     Dates: start: 20181101, end: 20181101
  6. ELIQUIS [Suspect]
     Active Substance: APIXABAN
     Indication: CEREBROVASCULAR ACCIDENT PROPHYLAXIS
     Dosage: 2.5 MILLIGRAM
     Route: 065
     Dates: start: 2017
  7. NULOJIX [Suspect]
     Active Substance: BELATACEPT
     Dosage: UNK
     Route: 065
     Dates: start: 20180920
  8. SYNTHROID [Concomitant]
     Active Substance: LEVOTHYROXINE SODIUM
     Indication: PRODUCT USED FOR UNKNOWN INDICATION
     Route: 065
  9. FUROSEMIDE. [Concomitant]
     Active Substance: FUROSEMIDE
     Indication: PRODUCT USED FOR UNKNOWN INDICATION
     Dosage: UNK
     Route: 065
  10. ADDERALL [Concomitant]
     Active Substance: AMPHETAMINE ASPARTATE\AMPHETAMINE SULFATE\DEXTROAMPHETAMINE SACCHARATE\DEXTROAMPHETAMINE SULFATE
     Indication: PRODUCT USED FOR UNKNOWN INDICATION
     Dosage: 30 MILLIGRAM, DAILY
     Route: 048
     Dates: start: 20190125, end: 20190529
  11. VALSARTAN. [Concomitant]
     Active Substance: VALSARTAN
     Indication: HYPERTENSION
     Dosage: 40 MILLIGRAM
     Route: 048
     Dates: start: 20170810, end: 20190423
  12. NULOJIX [Suspect]
     Active Substance: BELATACEPT
     Indication: RENAL TRANSPLANT
     Dosage: UNK
     Dates: start: 201808
  13. METOPROLOL SUCCINATE. [Concomitant]
     Active Substance: METOPROLOL SUCCINATE
     Indication: CARDIAC DISORDER
     Dosage: 0.5 TAB
     Route: 065
     Dates: start: 2017
  14. FLECAINIDE [Concomitant]
     Active Substance: FLECAINIDE
     Indication: PRODUCT USED FOR UNKNOWN INDICATION
     Route: 065
  15. PREDNISOLONE. [Concomitant]
     Active Substance: PREDNISOLONE
     Indication: PRODUCT USED FOR UNKNOWN INDICATION
     Dosage: 3 MILLIGRAM
     Route: 048
     Dates: start: 2015

REACTIONS (13)
  - Blood cholesterol increased [Unknown]
  - Back pain [Unknown]
  - Posture abnormal [Unknown]
  - Sinus node dysfunction [Unknown]
  - Prescribed underdose [Unknown]
  - Arthralgia [Unknown]
  - Muscular weakness [Unknown]
  - Asthenia [Unknown]
  - Atrial fibrillation [Recovered/Resolved]
  - Renal disorder [Unknown]
  - Off label use [Unknown]
  - Diarrhoea [Unknown]
  - Fluid retention [Unknown]

NARRATIVE: CASE EVENT DATE: 20190206
